FAERS Safety Report 5876088-8 (Version None)
Quarter: 2008Q3

REPORT INFORMATION
  Report Type: 
  Country: None (occurrence: None)
  Receive Date: 20080905
  Receipt Date: 20080827
  Transmission Date: 20090109
  Serious: Yes (Other)
  Sender: FDA-Public Use
  Company Number: BE-1166670

PATIENT
  Age: 65 Year
  Sex: Male

DRUGS (1)
  1. EMADINE [Suspect]
     Indication: CONJUNCTIVITIS ALLERGIC
     Dosage: OPHTHALMIC
     Route: 047

REACTIONS (6)
  - BURNING SENSATION [None]
  - HEADACHE [None]
  - INTRAOCULAR PRESSURE INCREASED [None]
  - NECK PAIN [None]
  - PHOTOPHOBIA [None]
  - VISUAL ACUITY REDUCED [None]
